FAERS Safety Report 5522308-9 (Version None)
Quarter: 2007Q4

REPORT INFORMATION
  Report Type: 
  Country: None (occurrence: None)
  Receive Date: 20071120
  Receipt Date: 20071109
  Transmission Date: 20080405
  Serious: Yes (Other)
  Sender: FDA-Public Use
  Company Number: US-JNJFOC-20071103961

PATIENT
  Sex: Female

DRUGS (14)
  1. ULTRAM [Suspect]
     Indication: PAIN
     Route: 048
  2. IBUPROFEN TABLETS [Concomitant]
     Indication: PAIN
     Route: 048
  3. SIMVASTATIN [Concomitant]
     Route: 065
  4. CARDIZEM CD [Concomitant]
     Route: 065
  5. SYNTHROID [Concomitant]
     Route: 065
  6. ADVAIR DISKUS 100/50 [Concomitant]
     Route: 065
  7. ALBUTEROL [Concomitant]
     Route: 065
  8. FUROSEMIDE [Concomitant]
     Route: 065
  9. POTASSIUM CHLORIDE [Concomitant]
     Route: 065
  10. ACIPHEX [Concomitant]
     Route: 065
  11. KLONOPIN [Concomitant]
     Route: 065
  12. LIDODERM [Concomitant]
     Route: 065
  13. ZANTAC [Concomitant]
     Route: 065
  14. SINGULAIR [Concomitant]
     Route: 065

REACTIONS (2)
  - PRURITUS [None]
  - THROAT TIGHTNESS [None]
